FAERS Safety Report 4501740-6 (Version None)
Quarter: 2004Q4

REPORT INFORMATION
  Report Type: 
  Country: None (occurrence: None)
  Receive Date: 20040928
  Receipt Date: 20040830
  Transmission Date: 20050328
  Serious: No
  Sender: FDA-Public Use
  Company Number: 04P-163-0271851-00

PATIENT
  Age: 43 Year
  Sex: Female
  Weight: 58.9676 kg

DRUGS (3)
  1. HUMIRA [Suspect]
     Indication: RHEUMATOID ARTHRITIS
     Dosage: 40 MG, 1 IN 2 WEEK, SUBCUTANEOUS
     Route: 058
     Dates: start: 20040601
  2. NORTRIPTYLINE HCL [Concomitant]
  3. CELECOXIB [Concomitant]

REACTIONS (1)
  - INJECTION SITE PAIN [None]
